FAERS Safety Report 10227295 (Version 2)
Quarter: 2014Q2

REPORT INFORMATION
  Report Type: Spontaneous
  Country: US (occurrence: US)
  Receive Date: 20140610
  Receipt Date: 20140610
  Transmission Date: 20141212
  Serious: Yes (Death, Other)
  Sender: FDA-Public Use
  Company Number: US-ELI_LILLY_AND_COMPANY-US201402004448

PATIENT
  Age: 69 Year
  Sex: Female

DRUGS (2)
  1. HUMALOG LISPRO [Suspect]
     Indication: PRODUCT USED FOR UNKNOWN INDICATION
     Dosage: 10 U, PRN
     Route: 065
     Dates: start: 20131227
  2. DEXAMETHASONE [Concomitant]
     Dosage: 4 MG, UNK

REACTIONS (6)
  - Lung neoplasm malignant [Fatal]
  - Plasma cell myeloma [Fatal]
  - Blood glucose increased [Unknown]
  - Feeling hot [Unknown]
  - Tremor [Unknown]
  - Cough [Unknown]
